FAERS Safety Report 8785829 (Version 2)
Quarter: 2012Q4

REPORT INFORMATION
  Report Type: 
  Country: US (occurrence: US)
  Receive Date: 20120914
  Receipt Date: 20120914
  Transmission Date: 20130627
  Serious: No
  Sender: FDA-Public Use
  Company Number: US-MYLANLABS-2012S1015180

PATIENT
  Age: 67 Year
  Sex: Male
  Weight: 108.86 kg

DRUGS (14)
  1. CLOPIDOGREL TABLETS USP [Suspect]
     Indication: MYOCARDIAL INFARCTION
     Route: 048
     Dates: start: 20120616
  2. CLOPIDOGREL TABLETS USP [Suspect]
     Indication: ANTIPLATELET THERAPY
     Route: 048
     Dates: start: 20120616
  3. METFORMIN [Concomitant]
     Indication: DIABETES MELLITUS
     Route: 048
  4. GLIPIZIDE [Concomitant]
     Indication: DIABETES MELLITUS
     Route: 048
  5. CARVEDILOL [Concomitant]
     Indication: BLOOD PRESSURE INCREASED
     Route: 048
  6. ACETYLSALICYLIC ACID [Concomitant]
     Route: 048
  7. OMEPRAZOLE [Concomitant]
     Route: 048
  8. GABAPENTIN [Concomitant]
     Dosage: 15X/Day
     Route: 048
  9. FLUOXETINE [Concomitant]
     Route: 048
  10. ATORVASTATIN [Concomitant]
     Route: 048
  11. VITAMIN D [Concomitant]
     Route: 048
  12. VITAMIN B12 [Concomitant]
     Route: 048
  13. IRON [Concomitant]
     Route: 048
  14. PAROXETINE [Concomitant]
     Indication: STRESS

REACTIONS (3)
  - Blood glucose increased [Not Recovered/Not Resolved]
  - Dysgeusia [Not Recovered/Not Resolved]
  - Ageusia [Not Recovered/Not Resolved]
